FAERS Safety Report 5513861-X (Version None)
Quarter: 2007Q4

REPORT INFORMATION
  Report Type: 
  Country: None (occurrence: None)
  Receive Date: 20071109
  Receipt Date: 20071109
  Transmission Date: 20080405
  Serious: Yes (Hospitalization)
  Sender: FDA-Public Use
  Company Number: None

PATIENT
  Sex: Female
  Weight: 109 kg

DRUGS (12)
  1. CISPLATIN [Suspect]
     Dosage: 100 MG
  2. DOXORUBICIN HYDROCHLORIDE [Suspect]
     Dosage: 90 MG
  3. TAXOL [Suspect]
     Dosage: 320 MG
  4. IMODIUM [Concomitant]
  5. SODIUM CHLORIDE [Concomitant]
  6. LISINOPRIL [Concomitant]
  7. CARDURA [Concomitant]
  8. ASPIRIN [Concomitant]
  9. HYDROCHLOROTHIAZIDE [Concomitant]
  10. NORVASC [Concomitant]
  11. COMPAZINE [Concomitant]
  12. SYNTHROID [Concomitant]

REACTIONS (6)
  - ASTHENIA [None]
  - BLOOD MAGNESIUM DECREASED [None]
  - DEHYDRATION [None]
  - DIARRHOEA [None]
  - NEUTROPHIL COUNT DECREASED [None]
  - PYREXIA [None]
